FAERS Safety Report 7914618-2 (Version None)
Quarter: 2011Q4

REPORT INFORMATION
  Report Type: 
  Country: None (occurrence: None)
  Receive Date: 20111115
  Receipt Date: 20111107
  Transmission Date: 20120403
  Serious: Yes (Other)
  Sender: FDA-Public Use
  Company Number: PHHY2011NL098316

PATIENT
  Sex: Male

DRUGS (11)
  1. SIMVASTATIN [Concomitant]
     Dosage: 40 MG, QD
  2. ZOMETA [Suspect]
     Dosage: 1 DF, PER 28 DAYS
     Dates: start: 20111107
  3. FLUTICASONE PROPIONATE/SALMETEROL [Concomitant]
     Dosage: 50/250 MG, QD
  4. LYNORAL [Concomitant]
     Dosage: 0.05 MG, QD
  5. ZOMETA [Suspect]
     Indication: PROSTATE CANCER METASTATIC
     Dosage: 1 DF, PER 28 DAYS
     Dates: start: 20110112
  6. OMEPRAZOLE [Concomitant]
     Dosage: 40 MG, QD
  7. ZOMETA [Suspect]
     Dosage: 1 DF, PER 28 DAYS
     Dates: start: 20111010
  8. ACETAMINOPHEN [Concomitant]
     Dosage: 500 MG, 6 TIMES
  9. PERSANTINE [Concomitant]
     Dosage: 200 MG, BID
  10. ACTONEL [Concomitant]
     Dosage: 35 MG, ONCE PER WEEK
  11. IBRUPROFEN [Concomitant]
     Dosage: 400 MG, QID

REACTIONS (6)
  - PROSTATIC SPECIFIC ANTIGEN INCREASED [None]
  - UPPER LIMB FRACTURE [None]
  - CONTUSION [None]
  - FALL [None]
  - EXCORIATION [None]
  - HAEMOGLOBIN DECREASED [None]
